FAERS Safety Report 24178533 (Version 1)
Quarter: 2024Q3

REPORT INFORMATION
  Report Type: Spontaneous
  Country: US (occurrence: None)
  Receive Date: 20240805
  Receipt Date: 20240805
  Transmission Date: 20241016
  Serious: Yes (Life-Threatening, Hospitalization, Disabling, Other)
  Sender: Public
  Company Number: None

PATIENT
  Age: 22 Year
  Sex: Female
  Weight: 61.23 kg

DRUGS (2)
  1. DEPO-PROVERA [Suspect]
     Active Substance: MEDROXYPROGESTERONE ACETATE
     Dosage: OTHER FREQUENCY : Q3 MONTHS?
     Route: 030
     Dates: start: 20240109
  2. DEPO-PROVERA [Suspect]
     Active Substance: MEDROXYPROGESTERONE ACETATE
     Indication: Contraception
     Dates: start: 20240409

REACTIONS (3)
  - Adrenocortical insufficiency acute [None]
  - Mitral valve prolapse [None]
  - Nervous system disorder [None]

NARRATIVE: CASE EVENT DATE: 20240201
